FAERS Safety Report 4887851-4 (Version None)
Quarter: 2006Q1

REPORT INFORMATION
  Report Type: 
  Country: None (occurrence: None)
  Receive Date: 20060123
  Receipt Date: 20050218
  Transmission Date: 20060701
  Serious: Yes (Hospitalization, Disabling)
  Sender: FDA-Public Use
  Company Number: US-MERCK-0502USA02964

PATIENT
  Age: 56 Year
  Sex: Female
  Weight: 84 kg

DRUGS (9)
  1. VIOXX [Suspect]
     Indication: SHOULDER PAIN
     Route: 048
     Dates: start: 19991215, end: 20041101
  2. VIOXX [Suspect]
     Route: 048
     Dates: start: 19991215, end: 20041101
  3. TORADOL [Concomitant]
     Route: 065
  4. TOPROL-XL [Concomitant]
     Route: 065
  5. AVANDIA [Concomitant]
     Route: 065
  6. LIPITOR [Concomitant]
     Route: 065
  7. ECOTRIN [Concomitant]
     Route: 065
  8. ULTRAM [Concomitant]
     Route: 065
  9. NASONEX [Concomitant]
     Route: 065

REACTIONS (3)
  - DIABETES MELLITUS [None]
  - JOINT INJURY [None]
  - MYOCARDIAL INFARCTION [None]
